FAERS Safety Report 15683441 (Version 3)
Quarter: 2019Q1

REPORT INFORMATION
  Report Type: Spontaneous
  Country: NL (occurrence: NL)
  Receive Date: 20181204
  Receipt Date: 20190117
  Transmission Date: 20190417
  Serious: Yes (Disabling)
  Sender: FDA-Public Use
  Company Number: NL-ALK-ABELLO A/S-2018AA004218

PATIENT

DRUGS (2)
  1. ACARIZAX 12 SQ-HDM [Suspect]
     Active Substance: DERMATOPHAGOIDES FARINAE\DERMATOPHAGOIDES PTERONYSSINUS
     Indication: MITE ALLERGY
     Dosage: UNK
     Dates: start: 20180910, end: 20181005
  2. GRAZAX [Concomitant]
     Active Substance: PHLEUM PRATENSE POLLEN
     Dosage: UNK
     Dates: start: 20181101

REACTIONS (4)
  - Truancy [Recovered/Resolved]
  - Oropharyngeal pain [Recovered/Resolved]
  - Headache [Recovered/Resolved]
  - Fatigue [Recovered/Resolved]

NARRATIVE: CASE EVENT DATE: 20180910
